FAERS Safety Report 18728630 (Version 2)
Quarter: 2021Q1

REPORT INFORMATION
  Report Type: Report from Study
  Country: CH (occurrence: CH)
  Receive Date: 20210112
  Receipt Date: 20210125
  Transmission Date: 20210419
  Serious: Yes (Hospitalization)
  Sender: FDA-Public Use
  Company Number: CH-ALNYLAM PHARMACEUTICALS, INC.-ALN-2021-000027

PATIENT

DRUGS (12)
  1. CALCITRIOL. [Concomitant]
     Active Substance: CALCITRIOL
     Indication: CHRONIC KIDNEY DISEASE
     Dosage: 0.1 MICROGRAM, QD
     Route: 048
     Dates: end: 20201218
  2. VITAMIN B6 [Concomitant]
     Active Substance: PYRIDOXINE HYDROCHLORIDE
     Indication: PRIMARY HYPEROXALURIA
     Dosage: 190 MILLIGRAM, QD
     Route: 048
  3. VENOFER [Concomitant]
     Active Substance: IRON SUCROSE
     Indication: ANAEMIA
  4. CALCIUM CARBONATE. [Concomitant]
     Active Substance: CALCIUM CARBONATE
     Indication: CHRONIC KIDNEY DISEASE
     Dosage: 100 MILLIGRAM, TID
  5. SOLUVIT [Concomitant]
     Active Substance: VITAMINS
     Indication: VITAMIN SUPPLEMENTATION
     Dosage: 1 DOSAGE FORM, AFTER HD
     Route: 048
  6. LUMASIRAN. [Suspect]
     Active Substance: LUMASIRAN
     Dosage: 66 MILLIGRAM, MONTHLY
     Route: 058
     Dates: start: 20201116, end: 20201214
  7. BIOGAIA [Concomitant]
     Active Substance: LACTOBACILLUS REUTERI
     Indication: CONSTIPATION
     Dosage: 2 DROP, QD, 2?1?2 GTT
     Route: 048
  8. MACROGOL [Concomitant]
     Active Substance: POLYETHYLENE GLYCOLS
     Indication: CONSTIPATION
     Dosage: 2.5 GRAM, QD
     Route: 048
  9. LUMASIRAN. [Suspect]
     Active Substance: LUMASIRAN
     Indication: HYPEROXALURIA
     Dosage: 72 MILLIGRAM, MONTHLY
     Route: 058
     Dates: start: 20210112
  10. VITAMIN D3 STREULI [Concomitant]
     Active Substance: CHOLECALCIFEROL
     Indication: CHRONIC KIDNEY DISEASE
     Dosage: 800 INTERNATIONAL UNIT, QD
     Route: 048
  11. EPREX [Concomitant]
     Active Substance: ERYTHROPOIETIN
     Indication: CHRONIC KIDNEY DISEASE
     Dosage: 5000 INTERNATIONAL UNIT, WEEKLY, SC/IV
     Route: 042
  12. VENOFER [Concomitant]
     Active Substance: IRON SUCROSE
     Indication: CHRONIC KIDNEY DISEASE
     Dosage: 50 MILLIGRAM, EVERY 14 DAYS
     Route: 042

REACTIONS (2)
  - Catheter placement [Recovered/Resolved]
  - Device dislocation [Recovered/Resolved]

NARRATIVE: CASE EVENT DATE: 20210104
